FAERS Safety Report 7132704-4 (Version None)
Quarter: 2010Q4

REPORT INFORMATION
  Report Type: 
  Country: None (occurrence: None)
  Receive Date: 20101129
  Receipt Date: 20101129
  Transmission Date: 20110411
  Serious: No
  Sender: FDA-Public Use
  Company Number: None

PATIENT
  Sex: Female
  Weight: 54.5 kg

DRUGS (1)
  1. CLARITHROMYCIN [Suspect]
     Indication: STREPTOCOCCAL INFECTION
     Dosage: 500 MG 2X DAY
     Dates: start: 20101011, end: 20101022

REACTIONS (3)
  - ACTIVITIES OF DAILY LIVING IMPAIRED [None]
  - MUSCULOSKELETAL STIFFNESS [None]
  - MYALGIA [None]
